FAERS Safety Report 11632153 (Version 1)
Quarter: 2015Q4

REPORT INFORMATION
  Report Type: Spontaneous
  Country: US (occurrence: None)
  Receive Date: 20151014
  Receipt Date: 20151014
  Transmission Date: 20160304
  Serious: Yes (Other)
  Sender: FDA-Public Use
  Company Number: None

PATIENT
  Age: 65 Year
  Sex: Female
  Weight: 42.18 kg

DRUGS (12)
  1. BENLYSTA [Suspect]
     Active Substance: BELIMUMAB
     Indication: SYSTEMIC LUPUS ERYTHEMATOSUS
     Route: 042
     Dates: start: 20130913, end: 20140227
  2. ACYCLOVIR. [Concomitant]
     Active Substance: ACYCLOVIR
  3. L-THOROXIN [Concomitant]
  4. B2 [Concomitant]
  5. POWER PORT [Concomitant]
  6. NORFLEX [Concomitant]
     Active Substance: ORPHENADRINE CITRATE
  7. PERDIEM WITH STIMULANT [Concomitant]
  8. SALAGEN [Concomitant]
     Active Substance: PILOCARPINE HYDROCHLORIDE
  9. DAZAPAM [Concomitant]
  10. VITAMIN D [Concomitant]
     Active Substance: CHOLECALCIFEROL
  11. PLACQUENIL [Concomitant]
  12. BLOOD SERUM DROPS [Concomitant]

REACTIONS (2)
  - Migraine [None]
  - Diffuse large B-cell lymphoma [None]

NARRATIVE: CASE EVENT DATE: 20150518
